FAERS Safety Report 17581820 (Version 1)
Quarter: 2020Q1

REPORT INFORMATION
  Report Type: Report from Study
  Country: US (occurrence: US)
  Receive Date: 20200325
  Receipt Date: 20200325
  Transmission Date: 20200409
  Serious: Yes (Death, Other)
  Sender: FDA-Public Use
  Company Number: NVSC2020US073215

PATIENT
  Age: 25 Year
  Sex: Female

DRUGS (3)
  1. KYMRIAH [Suspect]
     Active Substance: TISAGENLECLEUCEL
     Indication: B-CELL TYPE ACUTE LEUKAEMIA
     Dosage: ONCE/SINGLE
     Route: 041
  2. FLUDARABINE [Concomitant]
     Active Substance: FLUDARABINE PHOSPHATE
     Indication: CHEMOTHERAPY
     Dosage: UNK
     Route: 065
  3. CYCLOPHOSPHAMIDE. [Concomitant]
     Active Substance: CYCLOPHOSPHAMIDE
     Indication: CHEMOTHERAPY
     Dosage: UNK
     Route: 065

REACTIONS (19)
  - Urinary tract infection [Unknown]
  - Haematocrit decreased [Unknown]
  - Acute lymphocytic leukaemia recurrent [Fatal]
  - Bacterial infection [Unknown]
  - Enterococcal infection [Unknown]
  - Rhinovirus infection [Unknown]
  - Cytokine release syndrome [Recovered/Resolved]
  - Pyrexia [Recovered/Resolved]
  - Minimal residual disease [Unknown]
  - Viral infection [Unknown]
  - Haemoglobin decreased [Unknown]
  - Staphylococcal infection [Unknown]
  - Klebsiella infection [Unknown]
  - Treatment failure [Unknown]
  - White blood cell count decreased [Unknown]
  - Cellulitis [Unknown]
  - Lymphocyte count decreased [Unknown]
  - Neutrophil count decreased [Unknown]
  - Platelet count decreased [Unknown]
